FAERS Safety Report 6314075-6 (Version None)
Quarter: 2009Q3

REPORT INFORMATION
  Report Type: 
  Country: None (occurrence: None)
  Receive Date: 20090814
  Receipt Date: 20090807
  Transmission Date: 20100115
  Serious: Yes (Other)
  Sender: FDA-Public Use
  Company Number: WAES  0908USA01528

PATIENT
  Age: 84 Year
  Sex: Female

DRUGS (6)
  1. HYZAAR [Suspect]
     Dosage: 1 DOSE DAILY PO
     Route: 048
     Dates: start: 20070622
  2. ALTAT [Concomitant]
  3. GASLON N [Concomitant]
  4. MARZULENE-S [Concomitant]
  5. MEVAN [Concomitant]
  6. SUCRALFATE [Concomitant]

REACTIONS (1)
  - GASTRIC CANCER [None]
